FAERS Safety Report 21525359 (Version 1)
Quarter: 2022Q4

REPORT INFORMATION
  Report Type: Spontaneous
  Country: DE (occurrence: DE)
  Receive Date: 20221030
  Receipt Date: 20221030
  Transmission Date: 20230113
  Serious: Yes (Other)
  Sender: FDA-Public Use
  Company Number: DE-NOVARTISPH-NVSC2022DE242595

PATIENT
  Sex: Male

DRUGS (1)
  1. RISPERIDONE [Suspect]
     Active Substance: RISPERIDONE
     Indication: Product used for unknown indication
     Dosage: 1.25 MG
     Route: 065
     Dates: start: 202112

REACTIONS (3)
  - Normal pressure hydrocephalus [Unknown]
  - Olfactory dysfunction [Unknown]
  - Oedema mucosal [Unknown]

NARRATIVE: CASE EVENT DATE: 20220928
